FAERS Safety Report 9236236 (Version 1)
Quarter: 2013Q2

REPORT INFORMATION
  Report Type: Report from Study
  Country: US (occurrence: US)
  Receive Date: 20130417
  Receipt Date: 20130417
  Transmission Date: 20140414
  Serious: No
  Sender: FDA-Public Use
  Company Number: US-VERTEX PHARMACEUTICALS INC.-2013-004934

PATIENT
  Sex: Male
  Weight: 82 kg

DRUGS (3)
  1. VX-950 (TELAPREVIR) [Suspect]
     Indication: HEPATITIS C
     Dosage: 750 MG, TID
     Route: 048
     Dates: start: 201212
  2. RIBAPAK [Suspect]
     Indication: HEPATITIS C
     Dosage: 400MGAM, 200MG PM
     Route: 048
     Dates: start: 201212
  3. PEGASYS [Suspect]
     Indication: HEPATITIS C
     Dosage: 180 ?G, QW
     Route: 058
     Dates: start: 201212

REACTIONS (1)
  - Productive cough [Unknown]
